FAERS Safety Report 5076003-3 (Version None)
Quarter: 2006Q3

REPORT INFORMATION
  Report Type: 
  Country: None (occurrence: None)
  Receive Date: 20060808
  Receipt Date: 20060808
  Transmission Date: 20061208
  Serious: Yes (Hospitalization)
  Sender: FDA-Public Use
  Company Number: None

PATIENT
  Age: 57 Year
  Sex: Female
  Weight: 60 kg

DRUGS (2)
  1. LOVENOX [Suspect]
     Indication: DEEP VEIN THROMBOSIS
     Dosage: 60 MG Q12 HOURS SQ
     Route: 058
     Dates: start: 20060606, end: 20060616
  2. LOVENOX [Suspect]
     Indication: PULMONARY EMBOLISM
     Dosage: 60 MG Q12 HOURS SQ
     Route: 058
     Dates: start: 20060606, end: 20060616

REACTIONS (5)
  - BLOOD PRESSURE DECREASED [None]
  - HAEMATOCRIT DECREASED [None]
  - HAEMATOMA [None]
  - HAEMOGLOBIN DECREASED [None]
  - PLATELET COUNT DECREASED [None]
